FAERS Safety Report 7546403-8 (Version None)
Quarter: 2011Q2

REPORT INFORMATION
  Report Type: 
  Country: None (occurrence: None)
  Receive Date: 20110614
  Receipt Date: 20110603
  Transmission Date: 20111010
  Serious: Yes (Other)
  Sender: FDA-Public Use
  Company Number: PHHY2011US41403

PATIENT
  Sex: Female
  Weight: 68.027 kg

DRUGS (1)
  1. GILENYA [Suspect]
     Indication: MULTIPLE SCLEROSIS
     Dosage: 0.5 MG, DAILY
     Route: 048
     Dates: start: 20110509

REACTIONS (7)
  - BLOOD PRESSURE DECREASED [None]
  - EYE DISCHARGE [None]
  - FATIGUE [None]
  - ABDOMINAL PAIN UPPER [None]
  - INFECTION [None]
  - ACNE [None]
  - YAWNING [None]
